FAERS Safety Report 5770120-8 (Version None)
Quarter: 2008Q2

REPORT INFORMATION
  Report Type: 
  Country: None (occurrence: None)
  Receive Date: 20080613
  Receipt Date: 20080421
  Transmission Date: 20081010
  Serious: No
  Sender: FDA-Public Use
  Company Number: US-ABBOTT-08P-163-0448131-00

PATIENT
  Sex: Male
  Weight: 82.628 kg

DRUGS (1)
  1. HUMIRA [Suspect]
     Indication: CROHN'S DISEASE
     Route: 058
     Dates: start: 20070801

REACTIONS (5)
  - DIARRHOEA [None]
  - MALAISE [None]
  - SINUS OPERATION [None]
  - VOMITING [None]
  - WEIGHT DECREASED [None]
